FAERS Safety Report 4990943-2 (Version None)
Quarter: 2006Q2

REPORT INFORMATION
  Report Type: 
  Country: None (occurrence: None)
  Receive Date: 20060503
  Receipt Date: 20051003
  Transmission Date: 20061013
  Serious: Yes (Hospitalization, Other)
  Sender: FDA-Public Use
  Company Number: US-MERCK-0510USA02672

PATIENT
  Age: 72 Year
  Sex: Female
  Weight: 68 kg

DRUGS (2)
  1. VIOXX [Suspect]
     Indication: ARTHRALGIA
     Route: 048
     Dates: start: 19991215, end: 20020423
  2. VIOXX [Suspect]
     Route: 048
     Dates: start: 20020201

REACTIONS (12)
  - ANGINA PECTORIS [None]
  - BLOOD PRESSURE INADEQUATELY CONTROLLED [None]
  - CARDIOVASCULAR DISORDER [None]
  - CHRONIC RESPIRATORY DISEASE [None]
  - CORONARY ARTERY DISEASE [None]
  - CORONARY ARTERY THROMBOSIS [None]
  - EMOTIONAL DISORDER [None]
  - HYPERTENSION [None]
  - JOINT INJURY [None]
  - KNEE ARTHROPLASTY [None]
  - MENTAL DISORDER [None]
  - MYOCARDIAL INFARCTION [None]
